FAERS Safety Report 13364728 (Version 1)
Quarter: 2017Q1

REPORT INFORMATION
  Report Type: Spontaneous
  Country: US (occurrence: US)
  Receive Date: 20170323
  Receipt Date: 20170323
  Transmission Date: 20170429
  Serious: Yes (Other)
  Sender: FDA-Public Use
  Company Number: US-JNJFOC-20161004918

PATIENT
  Age: 18 Year
  Sex: Male

DRUGS (4)
  1. RISPERDAL [Suspect]
     Active Substance: RISPERIDONE
     Indication: PRODUCT USED FOR UNKNOWN INDICATION
     Route: 048
  2. RISPERDAL [Suspect]
     Active Substance: RISPERIDONE
     Indication: AUTISM
     Dosage: 1MG-3MG
     Route: 048
     Dates: start: 2008, end: 2014
  3. RISPERDAL [Suspect]
     Active Substance: RISPERIDONE
     Indication: AUTISM
     Route: 048
  4. RISPERDAL [Suspect]
     Active Substance: RISPERIDONE
     Indication: AUTISM
     Route: 048
     Dates: start: 1993, end: 2007

REACTIONS (2)
  - Obesity [Unknown]
  - Gynaecomastia [Unknown]

NARRATIVE: CASE EVENT DATE: 199606
